FAERS Safety Report 6099403-1 (Version None)
Quarter: 2009Q1

REPORT INFORMATION
  Report Type: 
  Country: None (occurrence: None)
  Receive Date: 20090226
  Receipt Date: 20090226
  Transmission Date: 20090719
  Serious: Yes (Hospitalization)
  Sender: FDA-Public Use
  Company Number: None

PATIENT
  Age: 66 Year
  Sex: Male
  Weight: 68.95 kg

DRUGS (2)
  1. GLYBURIDE [Suspect]
     Indication: DIABETES MELLITUS
     Dosage: EVERYDAY PO
     Route: 048
     Dates: start: 20080331, end: 20081224
  2. METFORMIN HCL [Suspect]
     Dosage: 1000 MG BID PO
     Route: 048
     Dates: start: 20080331, end: 20081224

REACTIONS (3)
  - DYSPHAGIA [None]
  - HYPERGLYCAEMIA [None]
  - TREATMENT NONCOMPLIANCE [None]
